FAERS Safety Report 20955612 (Version 2)
Quarter: 2022Q3

REPORT INFORMATION
  Report Type: Spontaneous
  Country: JP (occurrence: JP)
  Receive Date: 20220614
  Receipt Date: 20220711
  Transmission Date: 20221027
  Serious: Yes (Death, Other)
  Sender: FDA-Public Use
  Company Number: JP-BAXTER-2022BAX012153

PATIENT
  Age: 60 Year
  Sex: Female

DRUGS (1)
  1. CYCLOPHOSPHAMIDE [Suspect]
     Active Substance: CYCLOPHOSPHAMIDE
     Indication: Thyroid cancer
     Dosage: FOR 5 YEARS
     Route: 065

REACTIONS (7)
  - Pleuroparenchymal fibroelastosis [Fatal]
  - Dyspnoea exertional [Fatal]
  - Cough [Fatal]
  - Sarcoidosis [Unknown]
  - Dyspnoea exertional [Unknown]
  - Cough [Unknown]
  - Hypersensitivity pneumonitis [Unknown]
